FAERS Safety Report 17210605 (Version 2)
Quarter: 2020Q1

REPORT INFORMATION
  Report Type: Report from Study
  Country: JP (occurrence: JP)
  Receive Date: 20191227
  Receipt Date: 20200103
  Transmission Date: 20200409
  Serious: Yes (Hospitalization, Other)
  Sender: FDA-Public Use
  Company Number: JP-BRISTOL-MYERS SQUIBB COMPANY-BMS-2019-112530

PATIENT
  Age: 22 Year
  Sex: Male
  Weight: 119.2 kg

DRUGS (9)
  1. BIOFERMIN [BACILLUS SUBTILIS;LACTOMIN] [Concomitant]
     Indication: PROPHYLAXIS AGAINST DIARRHOEA
     Dosage: 1 DOSAGE FORM, Q8H
     Route: 048
  2. THYRADIN [Concomitant]
     Active Substance: LEVOTHYROXINE
     Indication: HYPOTHYROIDISM
     Dosage: 12.5 MICROGRAM, QD
     Route: 048
  3. VIMPAT [Concomitant]
     Active Substance: LACOSAMIDE
     Indication: EPILEPSY
     Dosage: 100 MILLIGRAM, Q12H
     Route: 048
  4. CANDESARTAN. [Concomitant]
     Active Substance: CANDESARTAN
     Indication: HYPERTENSION
     Route: 048
  5. DENOTAS [Concomitant]
     Active Substance: CALCIUM CARBONATE\CHOLECALCIFEROL\MAGNESIUM CARBONATE
     Indication: METABOLIC DISORDER PROPHYLAXIS
     Dosage: 2 DOSAGE FORM, QD
     Route: 048
  6. LANSOPRAZOLE. [Concomitant]
     Active Substance: LANSOPRAZOLE
     Indication: PROPHYLAXIS AGAINST GASTROINTESTINAL ULCER
     Dosage: 15 MILLIGRAM, QD
     Route: 048
  7. CALONAL [Concomitant]
     Active Substance: ACETAMINOPHEN
     Indication: TUMOUR ASSOCIATED FEVER
     Dosage: 500 MILLIGRAM, Q8H
     Route: 048
  8. NIVOLUMAB [Suspect]
     Active Substance: NIVOLUMAB
     Indication: ALVEOLAR SOFT PART SARCOMA
     Dosage: 240 MILLIGRAM, Q2WK
     Route: 041
     Dates: start: 20190101
  9. NIFEDIPINE. [Concomitant]
     Active Substance: NIFEDIPINE
     Indication: HYPERTENSION
     Dosage: 40 MILLIGRAM, QD
     Route: 048

REACTIONS (2)
  - Pleural infection [Recovered/Resolved]
  - Tumour haemorrhage [Recovering/Resolving]

NARRATIVE: CASE EVENT DATE: 20191103
